FAERS Safety Report 7462024-X (Version None)
Quarter: 2011Q2

REPORT INFORMATION
  Report Type: 
  Country: None (occurrence: None)
  Receive Date: 20110506
  Receipt Date: 20080811
  Transmission Date: 20111010
  Serious: Yes (Death, Hospitalization, Other)
  Sender: FDA-Public Use
  Company Number: US-BAYER-200830422NA

PATIENT
  Age: 71 Year
  Sex: Male
  Weight: 76.19 kg

DRUGS (21)
  1. ACETYLSALICYLIC ACID SRT [Concomitant]
     Dosage: 81 MG, QD
     Route: 048
  2. PROTAMINE SULFATE [Concomitant]
     Dosage: 33 ML UNK
     Route: 042
     Dates: start: 20020610
  3. NIMBEX [Concomitant]
     Dosage: 10 MG, UNK
     Route: 042
     Dates: start: 20020610
  4. LASIX [Concomitant]
     Dosage: 20 MG, QD
     Route: 048
  5. RANITIDINE [Concomitant]
     Dosage: 150 MG, QD
     Route: 048
  6. POTASSIUM CHLORIDE [Concomitant]
     Dosage: 10 MEQ, QD
     Route: 048
  7. SODIUM BICARBONATE [Concomitant]
     Dosage: 1 AMPULE
     Route: 042
     Dates: start: 20020610, end: 20020610
  8. ALLEGRA [Concomitant]
     Dosage: 60 MG, QD
     Route: 048
  9. ALBUMIN (HUMAN) [Concomitant]
     Dosage: 500 ML, UNK
     Route: 042
     Dates: start: 20020610, end: 20020610
  10. ANCEF [Concomitant]
     Dosage: 2 G, UNK
     Route: 042
     Dates: start: 20020610, end: 20020610
  11. SIMVASTATIN [Concomitant]
     Dosage: 20 MG, QD
     Route: 048
  12. CARDIOPLEGIA [Concomitant]
     Dosage: 3.3 L, UNK
  13. VERSED [Concomitant]
     Dosage: 2 MG, UNK
     Route: 042
     Dates: start: 20020610, end: 20020610
  14. NITROGLYCERIN [Concomitant]
     Dosage: UNK
     Route: 042
     Dates: start: 20020610
  15. TRASYLOL [Suspect]
     Indication: CORONARY ARTERY BYPASS
     Dosage: 200 ML VIA CARDIOPULMONARY BYPASS
     Route: 042
     Dates: start: 20020610, end: 20020610
  16. FOSINOPRIL SODIUM [Concomitant]
     Dosage: 40 MG, QD
     Route: 048
  17. PROTAMINE SULFATE [Concomitant]
     Dosage: 360 MG, UNK
     Route: 042
     Dates: start: 20020610, end: 20020610
  18. HEPARIN [Concomitant]
     Dosage: 43000 U
     Route: 042
     Dates: start: 20020610, end: 20020610
  19. ETOMIDATE [Concomitant]
     Dosage: 20 MG, UNK
     Route: 042
     Dates: start: 20020610, end: 20020610
  20. DOPAMINE HCL [Concomitant]
     Dosage: UNK
     Route: 042
     Dates: start: 20020610
  21. DIPRIVAN [Concomitant]
     Dosage: UNK
     Route: 042
     Dates: start: 20020610

REACTIONS (13)
  - DEATH [None]
  - ANXIETY [None]
  - FEAR [None]
  - PAIN [None]
  - RENAL IMPAIRMENT [None]
  - RENAL INJURY [None]
  - ANHEDONIA [None]
  - MULTI-ORGAN FAILURE [None]
  - EMOTIONAL DISTRESS [None]
  - STRESS [None]
  - INJURY [None]
  - RENAL FAILURE [None]
  - UNEVALUABLE EVENT [None]
